FAERS Safety Report 12121791 (Version 3)
Quarter: 2016Q1

REPORT INFORMATION
  Report Type: Spontaneous
  Country: US (occurrence: US)
  Receive Date: 20160226
  Receipt Date: 20160330
  Transmission Date: 20160526
  Serious: Yes (Hospitalization)
  Sender: FDA-Public Use
  Company Number: PHHY2016US024102

PATIENT
  Age: 34 Year
  Sex: Male

DRUGS (3)
  1. TRILEPTAL [Suspect]
     Active Substance: OXCARBAZEPINE
     Indication: PSYCHOTIC DISORDER
     Dosage: 300 MG, BID
     Route: 065
  2. AMITRIPTYLINE [Suspect]
     Active Substance: AMITRIPTYLINE
     Indication: INSOMNIA
     Dosage: 10 MG, NIGHTLY
     Route: 065
  3. QUETIAPINE [Suspect]
     Active Substance: QUETIAPINE
     Indication: PSYCHOTIC DISORDER
     Dosage: 400 MG, QD
     Route: 065

REACTIONS (7)
  - Abdominal pain lower [Recovered/Resolved]
  - Colitis ischaemic [Unknown]
  - Pyrexia [Recovered/Resolved]
  - Abdominal distension [Unknown]
  - Abdominal tenderness [Unknown]
  - Rectal haemorrhage [Recovered/Resolved]
  - Abdominal discomfort [Unknown]
